FAERS Safety Report 9485288 (Version 3)
Quarter: 2013Q3

REPORT INFORMATION
  Report Type: Spontaneous
  Country: JP (occurrence: JP)
  Receive Date: 20130828
  Receipt Date: 20130904
  Transmission Date: 20140515
  Serious: Yes (Death)
  Sender: FDA-Public Use
  Company Number: JP-PFIZER INC-2013243890

PATIENT
  Age: 96 Year
  Sex: Female

DRUGS (7)
  1. CELECOX [Suspect]
     Indication: BACK PAIN
     Dosage: 200 MG DAILY
     Route: 048
     Dates: start: 201308, end: 20130806
  2. PANALDINE [Concomitant]
     Dosage: UNK
     Route: 048
  3. NORVASC [Concomitant]
     Dosage: UNK
  4. TAKEPRON [Concomitant]
     Dosage: UNK
  5. ROCALTROL [Concomitant]
     Dosage: UNK
  6. MAGMITT [Concomitant]
     Dosage: UNK
  7. REBAMIPIDE [Concomitant]
     Dosage: UNK
     Route: 048
     Dates: start: 201308, end: 20130806

REACTIONS (1)
  - Somnolence [Fatal]
